APPROVED DRUG PRODUCT: VERAPAMIL HYDROCHLORIDE
Active Ingredient: VERAPAMIL HYDROCHLORIDE
Strength: 240MG
Dosage Form/Route: TABLET, EXTENDED RELEASE;ORAL
Application: A219252 | Product #003 | TE Code: AB
Applicant: ZYDUS LIFESCIENCES GLOBAL FZE
Approved: Nov 24, 2025 | RLD: No | RS: No | Type: RX